FAERS Safety Report 9248139 (Version 1)
Quarter: 2013Q1

REPORT INFORMATION
  Report Type: Spontaneous
  Country: US (occurrence: None)
  Receive Date: 20130305
  Receipt Date: 20130305
  Transmission Date: 20140127
  Serious: Yes (Other)
  Sender: FDA-Public Use
  Company Number: 163-21880-12101370

PATIENT
  Age: 62 Year
  Sex: Female

DRUGS (10)
  1. REVLIMID [Suspect]
     Indication: PLASMA CELL MYELOMA
     Dosage: 1 IN 1 D
     Route: 048
     Dates: start: 20111013
  2. BENADRYL (DIPHENHYDRAMINE HYDROCHLORIDE) [Concomitant]
  3. DEXAMETHASONE (DEXAMETHASONE) [Concomitant]
  4. VICODIN [Concomitant]
  5. ZOMETA (ZOLEDRONIC ACID) [Concomitant]
  6. VAGIFEM [Concomitant]
  7. TESSALON PERLE [Concomitant]
  8. MOTRIN (IBUPROFEN) [Concomitant]
  9. PROBIOTIC [Concomitant]
  10. BABY ASPIRIN [Concomitant]

REACTIONS (4)
  - Rib fracture [None]
  - Fatigue [None]
  - Blood potassium decreased [None]
  - Influenza [None]
